FAERS Safety Report 17128267 (Version 4)
Quarter: 2020Q3

REPORT INFORMATION
  Report Type: Spontaneous
  Country: JP (occurrence: JP)
  Receive Date: 20191209
  Receipt Date: 20200702
  Transmission Date: 20201102
  Serious: Yes (Death, Other)
  Sender: FDA-Public Use
  Company Number: JP-ROCHE-2490546

PATIENT
  Age: 65 Year
  Sex: Male
  Weight: 60 kg

DRUGS (11)
  1. XELODA [Suspect]
     Active Substance: CAPECITABINE
     Indication: HER2 POSITIVE GASTRIC CANCER
     Dosage: THE FIRST TWICE
     Route: 048
     Dates: start: 20170304, end: 20170318
  2. EMEND [Concomitant]
     Active Substance: APREPITANT
     Dosage: DOSAGE IS UNCERTAIN
     Route: 048
     Dates: start: 20170304, end: 20171024
  3. NORVASC [Concomitant]
     Active Substance: AMLODIPINE BESYLATE
     Dosage: DOSAGE IS UNCERTAIN
     Route: 048
  4. BRIPLATIN [Suspect]
     Active Substance: CISPLATIN
     Route: 041
     Dates: start: 2017, end: 20170124
  5. NOVAMIN [PROCHLORPERAZINE] [Concomitant]
     Active Substance: PROCHLORPERAZINE
     Dosage: DOSAGE IS UNCERTAIN
     Route: 048
     Dates: start: 20170309, end: 20171031
  6. HERCEPTIN [Suspect]
     Active Substance: TRASTUZUMAB
     Indication: HER2 POSITIVE GASTRIC CANCER
     Route: 041
     Dates: start: 20170304
  7. HERCEPTIN [Suspect]
     Active Substance: TRASTUZUMAB
     Route: 041
     Dates: start: 20170324
  8. XELODA [Suspect]
     Active Substance: CAPECITABINE
     Dosage: THE FIRST TWICE
     Route: 048
     Dates: start: 20170421, end: 20170505
  9. MAGNESIUM OXIDE. [Concomitant]
     Active Substance: MAGNESIUM OXIDE
     Dosage: DOSAGE IS UNCERTAIN
     Route: 048
     Dates: start: 20170329
  10. XELODA [Suspect]
     Active Substance: CAPECITABINE
     Dosage: THE FIRST TWICE
     Route: 048
     Dates: start: 20170530, end: 20171107
  11. BRIPLATIN [Suspect]
     Active Substance: CISPLATIN
     Indication: HER2 POSITIVE GASTRIC CANCER
     Route: 041
     Dates: start: 20170304

REACTIONS (3)
  - Neutropenia [Recovered/Resolved]
  - HER2 positive gastric cancer [Fatal]
  - Renal impairment [Not Recovered/Not Resolved]

NARRATIVE: CASE EVENT DATE: 20170418
